FAERS Safety Report 18086520 (Version 2)
Quarter: 2020Q3

REPORT INFORMATION
  Report Type: Report from Study
  Country: US (occurrence: US)
  Receive Date: 20200729
  Receipt Date: 20200909
  Transmission Date: 20201103
  Serious: Yes (Hospitalization, Other)
  Sender: FDA-Public Use
  Company Number: US-GLAXOSMITHKLINE-US2020AMR108338

PATIENT
  Sex: Female

DRUGS (1)
  1. NIRAPARIB [Suspect]
     Active Substance: NIRAPARIB
     Indication: OVARIAN CANCER
     Dosage: 200 MG, QD
     Dates: start: 20200601, end: 20200618

REACTIONS (5)
  - Off label use [Unknown]
  - Abdominal pain [Unknown]
  - Coronavirus infection [Unknown]
  - Gastrointestinal infection [Unknown]
  - Illness [Unknown]
